FAERS Safety Report 12386464 (Version 3)
Quarter: 2016Q3

REPORT INFORMATION
  Report Type: Spontaneous
  Country: US (occurrence: US)
  Receive Date: 20160519
  Receipt Date: 20160706
  Transmission Date: 20161109
  Serious: No
  Sender: FDA-Public Use
  Company Number: US-PFIZER INC-2016262959

PATIENT
  Age: 87 Year
  Sex: Female
  Weight: 59 kg

DRUGS (3)
  1. CHILDRENS ADVIL [Suspect]
     Active Substance: IBUPROFEN
     Indication: ARTHRITIS
     Dosage: 3 MG SUSPENSION AS NEEDED, HE GAVE HER 2 TABLESPOONS
  2. CHILDRENS ADVIL [Suspect]
     Active Substance: IBUPROFEN
     Indication: BACK PAIN
  3. CHILDRENS ADVIL [Suspect]
     Active Substance: IBUPROFEN
     Indication: PAIN IN EXTREMITY

REACTIONS (7)
  - Product taste abnormal [Recovered/Resolved]
  - Product colour issue [Recovered/Resolved]
  - Vomiting [Unknown]
  - Drug administered to patient of inappropriate age [Unknown]
  - Oral discomfort [Recovered/Resolved]
  - Throat irritation [Recovered/Resolved]
  - Dysgeusia [Recovered/Resolved]
